FAERS Safety Report 8529409 (Version 3)
Quarter: 2012Q4

REPORT INFORMATION
  Report Type: 
  Country: US (occurrence: US)
  Receive Date: 20120425
  Receipt Date: 20121009
  Transmission Date: 20130627
  Serious: Yes (Hospitalization, Other)
  Sender: FDA-Public Use
  Company Number: US-ROCHE-1027657

PATIENT
  Age: 25 None
  Sex: Male
  Weight: 65.83 kg

DRUGS (1)
  1. ACCUTANE [Suspect]
     Indication: ACNE
     Route: 065
     Dates: start: 1996, end: 1997

REACTIONS (3)
  - Crohn^s disease [Unknown]
  - Intestinal obstruction [Unknown]
  - Enterocolonic fistula [Unknown]
